FAERS Safety Report 10183651 (Version 2)
Quarter: 2014Q2

REPORT INFORMATION
  Report Type: Spontaneous
  Country: BR (occurrence: BR)
  Receive Date: 20140520
  Receipt Date: 20140520
  Transmission Date: 20141212
  Serious: Yes (Other)
  Sender: FDA-Public Use
  Company Number: BR-PFIZER INC-2014136155

PATIENT
  Age: 18 Year
  Sex: Female

DRUGS (7)
  1. ATROPINE SULFATE [Suspect]
     Dosage: 1 MG
  2. FENPROPOREX [Interacting]
     Indication: WEIGHT DECREASED
     Dosage: UNK
  3. PROPOFOL [Concomitant]
     Indication: ANAESTHESIA
     Dosage: UNK
  4. FENTANYL [Concomitant]
     Indication: ANAESTHESIA
     Dosage: UNK
  5. ATRACURIUM [Concomitant]
     Indication: ANAESTHESIA
     Dosage: UNK
  6. ISOFLURANE [Concomitant]
     Indication: ANAESTHESIA
     Dosage: 1.5% IN NITROUS OXIDE AND OXYGEN (1:1).
  7. NITROUS OXIDE [Concomitant]
     Indication: ANAESTHESIA

REACTIONS (3)
  - Drug interaction [Recovering/Resolving]
  - Supraventricular tachycardia [Recovering/Resolving]
  - Cardiogenic shock [Recovering/Resolving]
